FAERS Safety Report 7031578-X (Version None)
Quarter: 2010Q4

REPORT INFORMATION
  Report Type: 
  Country: None (occurrence: None)
  Receive Date: 20101006
  Receipt Date: 20101006
  Transmission Date: 20110411
  Serious: No
  Sender: FDA-Public Use
  Company Number: None

PATIENT

DRUGS (1)
  1. HEPARIN [Suspect]
     Dates: start: 20101001, end: 20101001

REACTIONS (2)
  - PROCEDURAL COMPLICATION [None]
  - THROMBOSIS [None]
